FAERS Safety Report 8416048-6 (Version None)
Quarter: 2012Q2

REPORT INFORMATION
  Report Type: 
  Country: None (occurrence: None)
  Receive Date: 20120606
  Receipt Date: 20120529
  Transmission Date: 20120825
  Serious: No
  Sender: FDA-Public Use
  Company Number: US-PFIZER INC-2012105747

PATIENT
  Sex: Female
  Weight: 86 kg

DRUGS (8)
  1. LIPITOR [Suspect]
     Dosage: 80 MG, 1X/DAY
     Route: 048
  2. NORVASC [Suspect]
     Indication: ARTERITIS
  3. ULTRACET [Concomitant]
     Indication: PAIN
     Dosage: UNK
  4. FLEXON [Concomitant]
     Indication: MUSCLE RELAXANT THERAPY
     Dosage: UNK
  5. LIPITOR [Suspect]
     Indication: BLOOD CHOLESTEROL INCREASED
     Dosage: 40 MG, 1X/DAY
     Route: 048
  6. ACETYLSALICYLIC ACID [Concomitant]
     Dosage: UNK
  7. NORVASC [Suspect]
     Indication: HYPERTENSION
     Dosage: 10 MG, 1X/DAY
     Route: 048
     Dates: end: 20120301
  8. XANAX [Concomitant]
     Indication: ANXIETY
     Dosage: UNK

REACTIONS (1)
  - NO ADVERSE EVENT [None]
